FAERS Safety Report 9096115 (Version 7)
Quarter: 2019Q4

REPORT INFORMATION
  Report Type: Report from Study
  Country: CA (occurrence: CA)
  Receive Date: 20130207
  Receipt Date: 20191018
  Transmission Date: 20200122
  Serious: Yes (Life-Threatening, Hospitalization, Other)
  Sender: FDA-Public Use
  Company Number: CA-ROCHE-1188675

PATIENT
  Age: 53 Year
  Sex: Male
  Weight: 69.9 kg

DRUGS (13)
  1. OMEPRAZOLE. [Concomitant]
     Active Substance: OMEPRAZOLE
  2. KETOPROFEN. [Concomitant]
     Active Substance: KETOPROFEN
  3. METHYLPREDNISOLONE. [Concomitant]
     Active Substance: METHYLPREDNISOLONE
     Route: 042
     Dates: start: 20090831
  4. TYLENOL [Concomitant]
     Active Substance: ACETAMINOPHEN
     Route: 048
     Dates: start: 20090812
  5. DIPHENHYDRAMINE HCL [Concomitant]
     Active Substance: DIPHENHYDRAMINE HYDROCHLORIDE
     Indication: PREMEDICATION
     Route: 048
     Dates: start: 20090831
  6. PREDNISONE. [Concomitant]
     Active Substance: PREDNISONE
  7. ATORVASTATIN [Suspect]
     Active Substance: ATORVASTATIN
     Indication: PRODUCT USED FOR UNKNOWN INDICATION
     Route: 065
  8. BENADRYL [Concomitant]
     Active Substance: DIPHENHYDRAMINE HYDROCHLORIDE
     Route: 048
     Dates: start: 20090812
  9. SOLU-MEDROL [Concomitant]
     Active Substance: METHYLPREDNISOLONE SODIUM SUCCINATE
     Route: 042
     Dates: start: 20090812
  10. RITUXAN [Suspect]
     Active Substance: RITUXIMAB
     Indication: RHEUMATOID ARTHRITIS
     Dosage: LAST INFUSION ON 07/JUL/2015
     Route: 042
     Dates: start: 20090812
  11. ELTROXIN [Concomitant]
     Active Substance: LEVOTHYROXINE
  12. ARAVA [Concomitant]
     Active Substance: LEFLUNOMIDE
  13. ACETAMINOPHEN. [Concomitant]
     Active Substance: ACETAMINOPHEN
     Indication: PREMEDICATION
     Route: 048
     Dates: start: 20090831

REACTIONS (10)
  - Infusion related reaction [Unknown]
  - Pneumonia [Unknown]
  - Emphysema [Unknown]
  - Rheumatoid arthritis [Not Recovered/Not Resolved]
  - Myalgia [Unknown]
  - Influenza [Unknown]
  - Oxygen saturation decreased [Unknown]
  - Blood cholesterol increased [Not Recovered/Not Resolved]
  - Vitello-intestinal duct remnant [Unknown]
  - Heart rate decreased [Unknown]

NARRATIVE: CASE EVENT DATE: 201207
